FAERS Safety Report 7352715-3 (Version None)
Quarter: 2011Q1

REPORT INFORMATION
  Report Type: 
  Country: None (occurrence: None)
  Receive Date: 20110302
  Receipt Date: 20100907
  Transmission Date: 20110831
  Serious: Yes (Hospitalization)
  Sender: FDA-Public Use
  Company Number: 314367

PATIENT
  Age: 66 Year
  Sex: Male
  Weight: 83 kg

DRUGS (2)
  1. NOVOLIN 70/30 [Suspect]
     Indication: TYPE 1 DIABETES MELLITUS
     Dosage: 30 IU, QD, SUBCUTANEOUS, 25 IU, QD, SUBCUTANEOUS
     Route: 058
     Dates: start: 20080101, end: 20100902
  2. NOVOLIN 70/30 [Suspect]
     Indication: TYPE 1 DIABETES MELLITUS
     Dosage: 30 IU, QD, SUBCUTANEOUS, 25 IU, QD, SUBCUTANEOUS
     Route: 058
     Dates: start: 20100902

REACTIONS (3)
  - HYPOAESTHESIA ORAL [None]
  - BLOOD GLUCOSE DECREASED [None]
  - INCORRECT STORAGE OF DRUG [None]
